FAERS Safety Report 11964654 (Version 2)
Quarter: 2017Q1

REPORT INFORMATION
  Report Type: Spontaneous
  Country: JP (occurrence: JP)
  Receive Date: 20160127
  Receipt Date: 20170117
  Transmission Date: 20170428
  Serious: Yes (Other)
  Sender: FDA-Public Use
  Company Number: JP-SUN PHARMACEUTICAL INDUSTRIES LTD-2016R1-110106

PATIENT
  Age: 42 Year
  Sex: Male

DRUGS (2)
  1. DOCETAXEL. [Suspect]
     Active Substance: DOCETAXEL
     Indication: GASTRIC CANCER STAGE IV
     Dosage: 40 MG/M2 ON DAY 1 FOR 120 MINS
     Route: 065
  2. TS-1 [Suspect]
     Active Substance: GIMERACIL\OTERACIL\TEGAFUR
     Indication: GASTRIC CANCER STAGE IV
     Dosage: 80 MG/M2, DAYS 1-14
     Route: 065

REACTIONS (4)
  - Malignant neoplasm progression [Unknown]
  - Therapeutic response decreased [Unknown]
  - Metastases to meninges [Unknown]
  - Treatment failure [Unknown]
